FAERS Safety Report 25906914 (Version 1)
Quarter: 2025Q4

REPORT INFORMATION
  Report Type: Report from Study
  Country: US (occurrence: US)
  Receive Date: 20251010
  Receipt Date: 20251010
  Transmission Date: 20260118
  Serious: Yes (Other)
  Sender: UCB
  Company Number: US-UCBSA-2025063693

PATIENT
  Sex: Female

DRUGS (1)
  1. FINTEPLA [Suspect]
     Active Substance: FENFLURAMINE
     Indication: Severe myoclonic epilepsy of infancy
     Dosage: 4 ML QAM + 3.5 ML QPM

REACTIONS (3)
  - Seizure [Not Recovered/Not Resolved]
  - Tic [Not Recovered/Not Resolved]
  - Muscle twitching [Not Recovered/Not Resolved]
